FAERS Safety Report 4921415-9 (Version None)
Quarter: 2006Q1

REPORT INFORMATION
  Report Type: 
  Country: None (occurrence: None)
  Receive Date: 20060224
  Receipt Date: 20060124
  Transmission Date: 20060701
  Serious: Yes (Other)
  Sender: FDA-Public Use
  Company Number: FR-AVENTIS-200610280FR

PATIENT
  Age: 68 Year
  Sex: Male

DRUGS (6)
  1. ARAVA [Suspect]
     Indication: RHEUMATOID ARTHRITIS
     Route: 048
     Dates: start: 20011201, end: 20050601
  2. NSAID'S [Concomitant]
     Indication: RHEUMATOID ARTHRITIS
  3. CORTANCYL [Concomitant]
     Indication: RHEUMATOID ARTHRITIS
     Route: 048
     Dates: start: 20020101
  4. ASPEGIC [Concomitant]
     Route: 048
  5. TENORMIN [Concomitant]
     Route: 048
  6. DAONIL [Concomitant]
     Indication: DIABETES MELLITUS
     Route: 048

REACTIONS (3)
  - LYMPHOMA [None]
  - LYMPHOPROLIFERATIVE DISORDER [None]
  - NORMOCHROMIC NORMOCYTIC ANAEMIA [None]
